FAERS Safety Report 11253884 (Version 2)
Quarter: 2016Q1

REPORT INFORMATION
  Report Type: Report from Study
  Country: JP (occurrence: JP)
  Receive Date: 20150709
  Receipt Date: 20160125
  Transmission Date: 20160525
  Serious: Yes (Hospitalization)
  Sender: FDA-Public Use
  Company Number: PHJP2015JP010835

PATIENT
  Age: 76 Year
  Sex: Female

DRUGS (2)
  1. AFINITOR [Suspect]
     Active Substance: EVEROLIMUS
     Indication: BREAST CANCER RECURRENT
     Route: 048
     Dates: end: 20150617
  2. EXEMESTANE. [Suspect]
     Active Substance: EXEMESTANE
     Indication: BREAST CANCER RECURRENT
     Dosage: UNK
     Route: 065
     Dates: end: 20150617

REACTIONS (4)
  - C-reactive protein increased [Unknown]
  - Malaise [Unknown]
  - Decreased appetite [Unknown]
  - Pyrexia [Unknown]

NARRATIVE: CASE EVENT DATE: 20150612
